FAERS Safety Report 4316387-4 (Version None)
Quarter: 2004Q1

REPORT INFORMATION
  Report Type: 
  Country: None (occurrence: None)
  Receive Date: 20040311
  Receipt Date: 20040301
  Transmission Date: 20041129
  Serious: Yes (Disabling)
  Sender: FDA-Public Use
  Company Number: FROV000168

PATIENT
  Age: 33 Year
  Sex: Female

DRUGS (2)
  1. FROVA [Suspect]
     Indication: MIGRAINE
     Dosage: 2.5 MG DAILY ORAL
     Route: 048
     Dates: start: 20031218, end: 20031219
  2. PIZOTIFEN (PIZOTIFEN) [Concomitant]

REACTIONS (3)
  - FEELING ABNORMAL [None]
  - GASTROINTESTINAL DISORDER [None]
  - HYPERAESTHESIA [None]
